FAERS Safety Report 14293416 (Version 1)
Quarter: 2017Q4

REPORT INFORMATION
  Report Type: Report from Study
  Country: NL (occurrence: NL)
  Receive Date: 20171215
  Receipt Date: 20171215
  Transmission Date: 20180321
  Serious: Yes (Hospitalization)
  Sender: FDA-Public Use
  Company Number: NL-IPSEN BIOPHARMACEUTICALS, INC.-2017-15873

PATIENT
  Age: 61 Year
  Sex: Female

DRUGS (1)
  1. SOMATULINE AUTOSOLUTION 120MG [Suspect]
     Active Substance: LANREOTIDE ACETATE
     Indication: PRODUCT USED FOR UNKNOWN INDICATION
     Dosage: 120MG
     Route: 058
     Dates: start: 20150903

REACTIONS (2)
  - Ileus [Unknown]
  - Constipation [Unknown]

NARRATIVE: CASE EVENT DATE: 20171211
